FAERS Safety Report 10360215 (Version 1)
Quarter: 2014Q3

REPORT INFORMATION
  Report Type: Spontaneous
  Country: IE (occurrence: None)
  Receive Date: 20140730
  Receipt Date: 20140730
  Transmission Date: 20150326
  Serious: Yes (Hospitalization, Other)
  Sender: FDA-Public Use
  Company Number: ADR-2014-01326

PATIENT
  Age: 61 Year
  Sex: Male

DRUGS (22)
  1. TRITACE (RAMIPRIL) [Concomitant]
  2. SIMVASTATIN (SIMVASTATIN) [Concomitant]
     Active Substance: SIMVASTATIN
  3. ACETYLSALICYLATE (ACETYLSALICYLIC ACID) [Concomitant]
  4. ZOLDEM (ZOLPIDEM TARTRATE) [Concomitant]
  5. RAMICOMP (HYDROCHLOROTHIAZIDE, RAMIPRIL) [Concomitant]
  6. ALLOSTAD (ALLOPURINOL) [Concomitant]
  7. RAMIPRIL (RAMIPRIL) [Concomitant]
     Active Substance: RAMIPRIL
  8. LOVENOX (HEPARIN-FRACTION, SODIUM SALT) [Concomitant]
  9. DULCOLAX (BISACODYL) [Concomitant]
     Active Substance: BISACODYL
  10. LEVONOX (LEVOFLOXACIN HEMIHYDRATE) [Concomitant]
  11. THROMBO ASS (ACETYLSALICYLIC ACID) [Concomitant]
     Active Substance: ASPIRIN
  12. ALNA (TAMSULOSIN HYDROCHLORIDE) [Concomitant]
     Active Substance: TAMSULOSIN HYDROCHLORIDE
  13. MYOCHOLINE (BETHANECHOL) [Concomitant]
  14. BACLOFEN INTRATHECAL [Suspect]
     Active Substance: BACLOFEN
  15. ENOXAPARIN SODIUM (ENOXAPRARIN SODIUM) [Concomitant]
  16. CITALOPRAM HYDROCHLORIDE (CITALOPRAM HYDROCHLORIDE) [Concomitant]
  17. TAMSULOSIN (TAMSULOSIN) [Concomitant]
     Active Substance: TAMSULOSIN
  18. TEMESTA (LORAZEPAM) [Concomitant]
     Active Substance: LORAZEPAM
  19. ALLOPURINOL (ALLOPURINOL) [Concomitant]
     Active Substance: ALLOPURINOL
  20. BISACODYL (BISACODYL) [Concomitant]
     Active Substance: BISACODYL
  21. BETHANECHOL (BETHANECHOL) [Concomitant]
  22. MOVICOL (MACROGOL, POTASSIUM CHORIDE, SODIUM BICARBONATE, SODIUM CHLORIDE) [Concomitant]

REACTIONS (8)
  - Abdominal pain lower [None]
  - Urine analysis abnormal [None]
  - Faecaloma [None]
  - Dysuria [None]
  - Bacterial test positive [None]
  - Flatulence [None]
  - Protein urine present [None]
  - Urinary retention [None]

NARRATIVE: CASE EVENT DATE: 20100628
